FAERS Safety Report 8537181-4 (Version None)
Quarter: 2012Q3

REPORT INFORMATION
  Report Type: 
  Country: None (occurrence: None)
  Receive Date: 20120725
  Receipt Date: 20111212
  Transmission Date: 20120928
  Serious: Yes (Other)
  Sender: FDA-Public Use
  Company Number: CO-PFIZER INC-2012178800

PATIENT
  Age: 66 Year
  Sex: Male

DRUGS (6)
  1. ACETYLSALICYLIC ACID [Concomitant]
     Dosage: 100 MG, 1X/DAY
  2. VERAPAMIL HYDROCHLORIDE [Concomitant]
     Dosage: 120 MG, 2X/DAY
  3. LOSARTAN [Concomitant]
     Dosage: 50 MG, 2X/DAY
  4. LIPITOR [Suspect]
     Dosage: 10 MG, 1X/DAY
  5. GEMFIBROZIL [Concomitant]
     Dosage: 600 MG, 1X/DAY
  6. FUROSEMIDE [Concomitant]
     Dosage: 40 MG, 1X/DAY

REACTIONS (2)
  - PROCEDURAL HYPERTENSION [None]
  - RENAL FAILURE CHRONIC [None]
